FAERS Safety Report 11297581 (Version 1)
Quarter: 2015Q3

REPORT INFORMATION
  Report Type: Spontaneous
  Country: US (occurrence: US)
  Receive Date: 20150722
  Receipt Date: 20150722
  Transmission Date: 20151125
  Serious: No
  Sender: FDA-Public Use
  Company Number: US-ELI_LILLY_AND_COMPANY-US200809005173

PATIENT
  Age: 59 Year
  Sex: Female

DRUGS (2)
  1. HUMATROPE [Suspect]
     Active Substance: SOMATROPIN
     Indication: PITUITARY TUMOUR
     Dates: end: 2007
  2. HUMATROPE [Suspect]
     Active Substance: SOMATROPIN
     Dates: start: 2007

REACTIONS (1)
  - Blood growth hormone increased [Recovered/Resolved]

NARRATIVE: CASE EVENT DATE: 2007
